FAERS Safety Report 9205772 (Version 1)
Quarter: 2013Q2

REPORT INFORMATION
  Report Type: Spontaneous
  Country: US (occurrence: US)
  Receive Date: 20130403
  Receipt Date: 20130403
  Transmission Date: 20140414
  Serious: No
  Sender: FDA-Public Use
  Company Number: US-009507513-1303USA014104

PATIENT
  Age: 75 Year
  Sex: Male

DRUGS (11)
  1. ZETIA [Suspect]
     Indication: CARDIAC DISORDER
     Dosage: 1 TABLET, QD
     Route: 048
     Dates: start: 201103, end: 20130321
  2. ASPIRIN [Concomitant]
  3. KLOR-CON [Concomitant]
  4. FUROSEMIDE [Concomitant]
  5. GLIMEPIRIDE [Concomitant]
  6. METFORMIN [Concomitant]
  7. FERREX [Concomitant]
  8. VITAMINS (UNSPECIFIED) [Concomitant]
  9. CARVEDILOL [Concomitant]
  10. LISINOPRIL [Concomitant]
  11. ATORVASTATIN [Concomitant]

REACTIONS (2)
  - Drug ineffective [Unknown]
  - Blood test abnormal [Unknown]
